FAERS Safety Report 23635124 (Version 3)
Quarter: 2024Q2

REPORT INFORMATION
  Report Type: Report from Study
  Country: CO (occurrence: CO)
  Receive Date: 20240315
  Receipt Date: 20240409
  Transmission Date: 20240716
  Serious: Yes (Hospitalization)
  Sender: FDA-Public Use
  Company Number: CO-JNJFOC-20240329835

PATIENT
  Age: 44 Year
  Sex: Female
  Weight: 100 kg

DRUGS (7)
  1. SIMPONI [Suspect]
     Active Substance: GOLIMUMAB
     Indication: Ankylosing spondylitis
     Dosage: LAST ADMINISTRATION ON 26-FEB-2024
     Route: 058
     Dates: start: 20230825
  2. HEPARIN OINTMENT [Concomitant]
  3. NIMESULIDE [Concomitant]
     Active Substance: NIMESULIDE
  4. DILOXANIDE [Concomitant]
  5. SERTRALINE [Concomitant]
     Active Substance: SERTRALINE HYDROCHLORIDE
  6. CLONAZEPAM [Concomitant]
     Active Substance: CLONAZEPAM
  7. ACETAMINOPHEN\TRAMADOL [Concomitant]
     Active Substance: ACETAMINOPHEN\TRAMADOL

REACTIONS (8)
  - Spinal cord injury [Not Recovered/Not Resolved]
  - Haemarthrosis [Not Recovered/Not Resolved]
  - Road traffic accident [Not Recovered/Not Resolved]
  - Ligament injury [Not Recovered/Not Resolved]
  - Calcinosis [Not Recovered/Not Resolved]
  - Blood test abnormal [Unknown]
  - Musculoskeletal pain [Unknown]
  - Haemoglobin decreased [Recovering/Resolving]

NARRATIVE: CASE EVENT DATE: 20230101
